FAERS Safety Report 9877333 (Version 1)
Quarter: 2014Q1

REPORT INFORMATION
  Report Type: Spontaneous
  Country: US (occurrence: US)
  Receive Date: 20140206
  Receipt Date: 20140206
  Transmission Date: 20141002
  Serious: Yes (Hospitalization)
  Sender: FDA-Public Use
  Company Number: US-BAYER-2014-014207

PATIENT
  Sex: Male

DRUGS (1)
  1. CIPRO [Suspect]
     Indication: EAR INFECTION
     Dosage: 500 MG, BID
     Route: 048
     Dates: start: 201312

REACTIONS (2)
  - Hypersensitivity [Recovering/Resolving]
  - Aphagia [Recovering/Resolving]
